FAERS Safety Report 13951484 (Version 1)
Quarter: 2017Q3

REPORT INFORMATION
  Report Type: Spontaneous
  Country: US (occurrence: US)
  Receive Date: 20170908
  Receipt Date: 20170908
  Transmission Date: 20171128
  Serious: No
  Sender: FDA-Public Use
  Company Number: US-JAZZ-2017-US-009674

PATIENT
  Sex: Female

DRUGS (15)
  1. XYREM [Suspect]
     Active Substance: SODIUM OXYBATE
     Dosage: DOSE ADJUSTMENT
     Route: 048
     Dates: start: 201508, end: 201603
  2. CALCIUM [Concomitant]
     Active Substance: CALCIUM
  3. DEXTROAMPHETAMINE                  /00016601/ [Suspect]
     Active Substance: DEXTROAMPHETAMINE
     Indication: PRODUCT USED FOR UNKNOWN INDICATION
  4. VITAMIN D3 [Concomitant]
     Active Substance: CHOLECALCIFEROL
  5. XYREM [Suspect]
     Active Substance: SODIUM OXYBATE
     Indication: PRODUCT USED FOR UNKNOWN INDICATION
     Dosage: 2.25 G, BID
     Route: 048
     Dates: start: 201508, end: 201508
  6. XYREM [Suspect]
     Active Substance: SODIUM OXYBATE
     Dosage: 2.5 G, BID
     Route: 048
     Dates: start: 201603
  7. DEXTROAMPHETAMINE                  /00016601/ [Concomitant]
     Active Substance: DEXTROAMPHETAMINE
  8. ESTRADIOL. [Concomitant]
     Active Substance: ESTRADIOL
  9. TOPIRAMATE. [Concomitant]
     Active Substance: TOPIRAMATE
  10. TYLENOL [Concomitant]
     Active Substance: ACETAMINOPHEN
  11. ONE DAILY MULTI VITAMINS [Concomitant]
  12. VYVANSE [Concomitant]
     Active Substance: LISDEXAMFETAMINE DIMESYLATE
  13. ADDERALL [Concomitant]
     Active Substance: AMPHETAMINE ASPARTATE\AMPHETAMINE SULFATE\DEXTROAMPHETAMINE SACCHARATE\DEXTROAMPHETAMINE SULFATE
  14. DULOXETINE HCL [Concomitant]
     Active Substance: DULOXETINE HYDROCHLORIDE
  15. MAGNESIUM [Concomitant]
     Active Substance: MAGNESIUM

REACTIONS (2)
  - Drug intolerance [Unknown]
  - Disturbance in attention [Unknown]

NARRATIVE: CASE EVENT DATE: 2017
